FAERS Safety Report 18565407 (Version 4)
Quarter: 2020Q4

REPORT INFORMATION
  Report Type: Report from Study
  Country: RO (occurrence: RO)
  Receive Date: 20201201
  Receipt Date: 20201224
  Transmission Date: 20210114
  Serious: Yes (Life-Threatening, Hospitalization, Disabling, Other)
  Sender: FDA-Public Use
  Company Number: NVSC2020RO312732

PATIENT
  Age: 19 Month
  Sex: Female
  Weight: 8.7 kg

DRUGS (4)
  1. NUSINERSEN [Concomitant]
     Active Substance: NUSINERSEN
     Indication: PRODUCT USED FOR UNKNOWN INDICATION
     Dosage: UNK
     Route: 065
  2. ZOLGENSMA [Suspect]
     Active Substance: ONASEMNOGENE ABEPARVOVEC-XIOI
     Indication: SPINAL MUSCULAR ATROPHY
     Dosage: 49.5 ML, ONCE/SINGLE
     Route: 042
     Dates: start: 20201111
  3. PREDNISONE. [Concomitant]
     Active Substance: PREDNISONE
     Indication: PRODUCT USED FOR UNKNOWN INDICATION
     Dosage: 8.75 UG, QD
     Route: 065
     Dates: start: 20201110, end: 20201119
  4. METHYLPREDNISOLON [Concomitant]
     Active Substance: METHYLPREDNISOLONE
     Indication: PRODUCT USED FOR UNKNOWN INDICATION
     Dosage: UNK
     Route: 065

REACTIONS (30)
  - Gastrointestinal haemorrhage [Recovered/Resolved]
  - Disseminated intravascular coagulation [Recovered/Resolved]
  - Regurgitation [Recovered/Resolved]
  - Bacterial infection [Unknown]
  - Mouth haemorrhage [Unknown]
  - Pyrexia [Recovered/Resolved]
  - Epistaxis [Recovered/Resolved]
  - Hepatic enzyme increased [Not Recovered/Not Resolved]
  - Acute kidney injury [Recovered/Resolved]
  - Blood sodium decreased [Recovered/Resolved]
  - Pancreatitis [Recovered/Resolved]
  - Alanine aminotransferase increased [Not Recovered/Not Resolved]
  - Aspartate aminotransferase increased [Not Recovered/Not Resolved]
  - Dyspnoea [Recovered/Resolved]
  - Amylase increased [Unknown]
  - Hepatocellular injury [Recovering/Resolving]
  - Renal haemorrhage [Recovered/Resolved]
  - Tachycardia [Recovered/Resolved]
  - Haemorrhage [Recovered/Resolved]
  - Platelet count decreased [Recovering/Resolving]
  - Multiple organ dysfunction syndrome [Recovered/Resolved]
  - Abnormal faeces [Recovered/Resolved]
  - Cardio-respiratory arrest [Recovered/Resolved]
  - Blood creatinine increased [Not Recovered/Not Resolved]
  - Respiratory arrest [Recovered/Resolved]
  - Red blood cell sedimentation rate increased [Unknown]
  - Troponin I increased [Unknown]
  - Blood urea increased [Recovered/Resolved]
  - Renal impairment [Not Recovered/Not Resolved]
  - Anuria [Recovered/Resolved]

NARRATIVE: CASE EVENT DATE: 20201114
